FAERS Safety Report 9749300 (Version 2)
Quarter: 2014Q2

REPORT INFORMATION
  Report Type: Spontaneous
  Country: US (occurrence: US)
  Receive Date: 20131212
  Receipt Date: 20140611
  Transmission Date: 20141212
  Serious: No
  Sender: FDA-Public Use
  Company Number: US-INCYTE CORPORATION-2013IN002729

PATIENT
  Age: 64 Year
  Sex: Male

DRUGS (3)
  1. JAKAFI [Suspect]
     Indication: MYELOFIBROSIS
     Dosage: 10 MG Q AM, 15 MG Q PM
     Route: 048
     Dates: start: 20130717, end: 201307
  2. JAKAFI [Suspect]
     Dosage: 5 MG, BID
     Route: 048
     Dates: start: 201307, end: 2014
  3. JAKAFI [Suspect]
     Dosage: 5 MG, QOD IN PM
     Dates: start: 2014

REACTIONS (3)
  - Cough [Not Recovered/Not Resolved]
  - Platelet count abnormal [Unknown]
  - Red blood cell count abnormal [Unknown]
